FAERS Safety Report 24782936 (Version 1)
Quarter: 2024Q4

REPORT INFORMATION
  Report Type: Spontaneous
  Country: CN (occurrence: CN)
  Receive Date: 20241227
  Receipt Date: 20241227
  Transmission Date: 20250114
  Serious: Yes (Hospitalization, Other)
  Sender: JOHNSON AND JOHNSON
  Company Number: CN-JNJFOC-20241257139

PATIENT
  Age: 77 Year
  Sex: Female
  Weight: 43 kg

DRUGS (5)
  1. REMICADE [Suspect]
     Active Substance: INFLIXIMAB
     Indication: Small intestine ulcer
     Route: 041
     Dates: start: 20241024, end: 20241024
  2. REMICADE [Suspect]
     Active Substance: INFLIXIMAB
     Indication: Large intestinal ulcer
     Route: 041
     Dates: start: 20240716
  3. REMICADE [Suspect]
     Active Substance: INFLIXIMAB
     Indication: Behcet^s syndrome
     Route: 041
     Dates: start: 20240730
  4. REMICADE [Suspect]
     Active Substance: INFLIXIMAB
     Indication: Thyroid operation
     Route: 041
     Dates: start: 20240829
  5. REMICADE [Suspect]
     Active Substance: INFLIXIMAB
     Route: 041
     Dates: start: 20240829

REACTIONS (2)
  - Pulmonary tuberculosis [Recovering/Resolving]
  - Off label use [Unknown]

NARRATIVE: CASE EVENT DATE: 20241122
